FAERS Safety Report 5489251-5 (Version None)
Quarter: 2007Q4

REPORT INFORMATION
  Report Type: 
  Country: None (occurrence: None)
  Receive Date: 20071018
  Receipt Date: 20071009
  Transmission Date: 20080405
  Serious: Yes (Other)
  Sender: FDA-Public Use
  Company Number: US-JNJFOC-20071002809

PATIENT
  Sex: Male
  Weight: 98.88 kg

DRUGS (1)
  1. REMICADE [Suspect]
     Indication: COLITIS ULCERATIVE
     Route: 042

REACTIONS (4)
  - COLECTOMY [None]
  - DIARRHOEA [None]
  - HAEMORRHAGE [None]
  - STOMACH DISCOMFORT [None]
